FAERS Safety Report 8305442-X (Version None)
Quarter: 2012Q2

REPORT INFORMATION
  Report Type: 
  Country: None (occurrence: None)
  Receive Date: 20120423
  Receipt Date: 20120418
  Transmission Date: 20120825
  Serious: Yes (Hospitalization)
  Sender: FDA-Public Use
  Company Number: US-GLAXOSMITHKLINE-A0969024C

PATIENT
  Age: 70 Year
  Sex: Male
  Weight: 64.7 kg

DRUGS (12)
  1. PROSCAR [Concomitant]
  2. ACYCLOVIR [Concomitant]
  3. NITROGLYCERIN [Concomitant]
  4. PRAVASTATIN [Concomitant]
  5. BACTRIM [Concomitant]
  6. PLAVIX [Concomitant]
  7. OFATUMUMAB [Suspect]
     Indication: CHRONIC LYMPHOCYTIC LEUKAEMIA
     Dosage: 100MG WEEKLY
     Route: 042
     Dates: start: 20120223
  8. LENALIDOMIDE [Suspect]
     Indication: CHRONIC LYMPHOCYTIC LEUKAEMIA
     Dosage: 10MG PER DAY
     Route: 048
     Dates: start: 20120224
  9. ATENOLOL [Concomitant]
  10. ASPIRIN [Concomitant]
  11. ROPINIROLE [Concomitant]
  12. SYNTHROID [Concomitant]

REACTIONS (3)
  - RENAL FAILURE ACUTE [None]
  - METABOLIC ENCEPHALOPATHY [None]
  - ASTHENIA [None]
